FAERS Safety Report 15725579 (Version 1)
Quarter: 2018Q4

REPORT INFORMATION
  Report Type: Spontaneous
  Country: FR (occurrence: FR)
  Receive Date: 20181215
  Receipt Date: 20181215
  Transmission Date: 20190205
  Serious: Yes (Hospitalization)
  Sender: FDA-Public Use
  Company Number: FR-ACCORD-096311

PATIENT
  Age: 29 Year
  Sex: Male

DRUGS (5)
  1. STILNOX [Suspect]
     Active Substance: ZOLPIDEM TARTRATE
     Dosage: STRENGTH-10MG
     Route: 048
     Dates: start: 20171106, end: 20171107
  2. SERTRALINE [Suspect]
     Active Substance: SERTRALINE HYDROCHLORIDE
     Indication: PRODUCT USED FOR UNKNOWN INDICATION
     Route: 048
     Dates: start: 20171106, end: 20171107
  3. METHADONE AP-HP [Suspect]
     Active Substance: METHADONE HYDROCHLORIDE
     Route: 048
     Dates: start: 20171106, end: 20171107
  4. COCAINE [Suspect]
     Active Substance: COCAINE
     Route: 065
     Dates: start: 20171106, end: 20171107
  5. SERESTA [Suspect]
     Active Substance: OXAZEPAM
     Route: 048
     Dates: start: 20171106, end: 20171107

REACTIONS (4)
  - Drug dependence [Not Recovered/Not Resolved]
  - Drug abuse [Unknown]
  - Tremor [Recovered/Resolved]
  - Anxiety [Recovered/Resolved]

NARRATIVE: CASE EVENT DATE: 20171106
